FAERS Safety Report 4269537-2 (Version None)
Quarter: 2004Q1

REPORT INFORMATION
  Report Type: 
  Country: None (occurrence: None)
  Receive Date: 20040113
  Receipt Date: 20031127
  Transmission Date: 20041129
  Serious: Yes (Hospitalization)
  Sender: FDA-Public Use
  Company Number: FR-BRISTOL-MYERS SQUIBB COMPANY-12445565

PATIENT
  Age: 72 Year
  Sex: Female

DRUGS (4)
  1. TAXOL [Suspect]
     Indication: BREAST CANCER METASTATIC
     Route: 042
     Dates: start: 20031027, end: 20031027
  2. ADRIAMYCIN PFS [Suspect]
     Indication: BREAST CANCER METASTATIC
     Route: 042
     Dates: start: 20031027, end: 20031027
  3. LYTOS [Concomitant]
  4. OROCAL [Concomitant]

REACTIONS (2)
  - CATHETER SITE INFECTION [None]
  - FEBRILE BONE MARROW APLASIA [None]
